FAERS Safety Report 23428978 (Version 2)
Quarter: 2024Q1

REPORT INFORMATION
  Report Type: Spontaneous
  Country: CN (occurrence: CN)
  Receive Date: 20240122
  Receipt Date: 20240124
  Transmission Date: 20240410
  Serious: Yes (Life-Threatening)
  Sender: FDA-Public Use
  Company Number: CN-BoehringerIngelheim-2024-BI-003169

PATIENT
  Age: 62 Year
  Sex: Female
  Weight: 65 kg

DRUGS (2)
  1. ALTEPLASE [Suspect]
     Active Substance: ALTEPLASE
     Indication: Thrombolysis
     Route: 042
     Dates: start: 20240105, end: 20240105
  2. BUTYLPHTHALIDE [Concomitant]
     Active Substance: BUTYLPHTHALIDE
     Indication: Drug therapy
     Route: 042
     Dates: start: 20240105, end: 20240105

REACTIONS (2)
  - Pharyngeal oedema [Recovered/Resolved]
  - Hypertrophy of tongue papillae [Recovered/Resolved]

NARRATIVE: CASE EVENT DATE: 20240105
